FAERS Safety Report 9587390 (Version 1)
Quarter: 2013Q4

REPORT INFORMATION
  Report Type: Spontaneous
  Country: IT (occurrence: IT)
  Receive Date: 20131003
  Receipt Date: 20131003
  Transmission Date: 20140711
  Serious: Yes (Hospitalization)
  Sender: FDA-Public Use
  Company Number: IT-TEVA-434070ISR

PATIENT
  Age: 72 Year
  Sex: Female
  Weight: 50 kg

DRUGS (5)
  1. VINCRISTINE [Suspect]
     Dosage: 2MG/M2, CYCLICAL
     Route: 042
     Dates: start: 20130806, end: 20130806
  2. DOXORUBICIN [Suspect]
     Dosage: 80MG/M2, CYCLICAL
     Route: 042
     Dates: start: 20130806, end: 20130806
  3. CICLOFOSFAMIDE [Suspect]
     Dosage: 1200MG/M2, CYCLICAL
     Route: 042
     Dates: start: 20130806, end: 20130806
  4. RITUXIMAB [Suspect]
     Dosage: 600MG/M2, CYCLICAL
     Route: 042
     Dates: start: 20130813, end: 20130813
  5. ACICLOVIR [Concomitant]

REACTIONS (3)
  - Confusional state [Unknown]
  - Mucosal inflammation [Unknown]
  - Renal failure acute [Unknown]
